FAERS Safety Report 8777342 (Version 1)
Quarter: 2012Q4

REPORT INFORMATION
  Report Type: 
  Country: US (occurrence: US)
  Receive Date: 20120911
  Receipt Date: 20120911
  Transmission Date: 20130627
  Serious: No
  Sender: FDA-Public Use
  Company Number: US-PFIZER INC-2012223687

PATIENT
  Age: 58 Year
  Sex: Female
  Weight: 99.77 kg

DRUGS (8)
  1. LYRICA [Suspect]
     Indication: NEURALGIA
     Dosage: UNK, 2x/day
     Route: 048
  2. TRAMADOL [Concomitant]
     Dosage: 50 mg, 4x/day
  3. OMEPRAZOLE [Concomitant]
     Indication: GASTROOESOPHAGEAL REFLUX DISEASE
     Dosage: 40 mg, 1x/day
  4. GEMFIBROZIL [Concomitant]
     Dosage: 600 mg, 2x/day
  5. LISINOPRIL [Concomitant]
     Indication: HYPERTENSION
     Dosage: 10 mg, 1x/day
  6. ALPRAZOLAM [Concomitant]
     Dosage: 1 mg, 1x/day
  7. TOPIRAMATE [Concomitant]
     Dosage: 50 mg, 1x/day
  8. TRAZODONE [Concomitant]
     Dosage: 50 mg, 1x/day

REACTIONS (1)
  - Confusional state [Not Recovered/Not Resolved]
